FAERS Safety Report 12527189 (Version 2)
Quarter: 2016Q4

REPORT INFORMATION
  Report Type: Spontaneous
  Country: US (occurrence: US)
  Receive Date: 20160705
  Receipt Date: 20161013
  Transmission Date: 20170207
  Serious: Yes (Other)
  Sender: FDA-Public Use
  Company Number: PHEH2016US016242

PATIENT
  Age: 70 Year
  Sex: Female
  Weight: 41.72 kg

DRUGS (9)
  1. RECLAST [Suspect]
     Active Substance: ZOLEDRONIC ACID
     Dosage: 5 MG, ONCE PER YEAR
     Route: 042
     Dates: start: 20140903
  2. RECLAST [Suspect]
     Active Substance: ZOLEDRONIC ACID
     Indication: OSTEOPENIA
     Dosage: 5 MG, ONCE PER YEAR
     Route: 042
     Dates: start: 20110629
  3. METOPROLOL SUCCINATE. [Concomitant]
     Active Substance: METOPROLOL SUCCINATE
     Indication: HYPERTENSION
     Dosage: 1 DF, QD
     Route: 065
  4. TOPROL XL [Suspect]
     Active Substance: METOPROLOL SUCCINATE
     Indication: HYPERTENSION
     Dosage: 25 MG, UNK
     Route: 048
  5. RECLAST [Suspect]
     Active Substance: ZOLEDRONIC ACID
     Dosage: 5 MG, ONCE PER YEAR
     Route: 042
     Dates: start: 20130821
  6. IPRATROPIUM BROMIDE. [Concomitant]
     Active Substance: IPRATROPIUM BROMIDE
     Indication: RHINITIS
     Dosage: 2 SPRAYS EACH NOSTRIL, BID
     Route: 065
  7. RECLAST [Suspect]
     Active Substance: ZOLEDRONIC ACID
     Indication: OSTEOPOROSIS
     Dosage: 5 MG, ONCE PER YEAR
     Route: 042
     Dates: start: 20100324
  8. RECLAST [Suspect]
     Active Substance: ZOLEDRONIC ACID
     Indication: OSTEOPOROSIS
     Dosage: 5 MG, ONCE PER YEAR
     Route: 042
     Dates: start: 20120725
  9. RECLAST [Suspect]
     Active Substance: ZOLEDRONIC ACID
     Dosage: 5 MG, ONCE PER YEAR
     Route: 042
     Dates: start: 20150916

REACTIONS (8)
  - Exposed bone in jaw [Unknown]
  - Gingivitis [Unknown]
  - Mouth ulceration [Not Recovered/Not Resolved]
  - Palatal swelling [Unknown]
  - Stomatitis [Recovered/Resolved]
  - Palatal disorder [Unknown]
  - Osteonecrosis of jaw [Recovering/Resolving]
  - Exostosis of jaw [Unknown]

NARRATIVE: CASE EVENT DATE: 20160304
